FAERS Safety Report 9608647 (Version 1)
Quarter: 2013Q4

REPORT INFORMATION
  Report Type: Spontaneous
  Country: GB (occurrence: None)
  Receive Date: 20131007
  Receipt Date: 20131007
  Transmission Date: 20140711
  Serious: Yes (Other)
  Sender: FDA-Public Use
  Company Number: AUR-APL-2013-07990

PATIENT
  Age: 58 Year
  Sex: Female
  Weight: 74 kg

DRUGS (6)
  1. SERTRALINE [Suspect]
     Indication: DEPRESSION
     Route: 048
     Dates: start: 20101116, end: 201306
  2. FOLIC ACID [Concomitant]
  3. PREGABALIN [Concomitant]
  4. SERETIDE [Concomitant]
  5. TIOTROPIUM [Concomitant]
  6. VENTOLIN (SALBUTAMOL) [Concomitant]

REACTIONS (3)
  - Liver function test abnormal [None]
  - Antinuclear antibody positive [None]
  - Hepatic steatosis [None]
